FAERS Safety Report 6315662-1 (Version None)
Quarter: 2009Q3

REPORT INFORMATION
  Report Type: 
  Country: None (occurrence: None)
  Receive Date: 20090818
  Receipt Date: 20090706
  Transmission Date: 20100115
  Serious: Yes (Hospitalization)
  Sender: FDA-Public Use
  Company Number: THQ2009A03920

PATIENT
  Age: 47 Year
  Sex: Male

DRUGS (9)
  1. ACTOS [Suspect]
     Indication: TYPE 2 DIABETES MELLITUS
     Dosage: 30 MG
     Dates: start: 20071011, end: 20090524
  2. ACTOS [Suspect]
     Indication: TYPE 2 DIABETES MELLITUS
     Dosage: 30 MG
     Dates: start: 20090528
  3. BYETTA [Suspect]
     Indication: TYPE 2 DIABETES MELLITUS
     Dosage: 10 UG, ACTUAL DOSE 20
     Dates: start: 20061220, end: 20090524
  4. BYETTA [Suspect]
     Indication: TYPE 2 DIABETES MELLITUS
     Dosage: 10 UG, ACTUAL DOSE 20
     Dates: start: 20090528
  5. METFORMIN HCL [Suspect]
     Indication: TYPE 2 DIABETES MELLITUS
     Dosage: 1000 MG
     Dates: start: 20060503, end: 20090524
  6. METFORMIN HCL [Suspect]
     Indication: TYPE 2 DIABETES MELLITUS
     Dosage: 1000 MG
     Dates: start: 20090528
  7. DIOVAN HCT [Concomitant]
  8. IBUPROFEN [Concomitant]
  9. DICLOFENAC [Concomitant]

REACTIONS (1)
  - EXOSTOSIS [None]
